FAERS Safety Report 20028570 (Version 1)
Quarter: 2021Q4

REPORT INFORMATION
  Report Type: Spontaneous
  Country: US (occurrence: US)
  Receive Date: 20211103
  Receipt Date: 20211103
  Transmission Date: 20220303
  Serious: Yes (Death, Hospitalization, Other)
  Sender: FDA-Public Use
  Company Number: US-APOTEX-2021AP045208

PATIENT
  Age: 67 Year
  Sex: Female

DRUGS (2)
  1. ALPRAZOLAM [Suspect]
     Active Substance: ALPRAZOLAM
     Indication: Product used for unknown indication
     Dosage: UNK
     Route: 065
  2. ALCOHOL [Suspect]
     Active Substance: ALCOHOL
     Indication: Product used for unknown indication
     Dosage: UNK
     Route: 065

REACTIONS (10)
  - Serotonin syndrome [Fatal]
  - Bradycardia [Fatal]
  - Acute lung injury [Fatal]
  - Acute respiratory distress syndrome [Fatal]
  - Hallucination [Fatal]
  - Haemolysis [Fatal]
  - Toxicity to various agents [Fatal]
  - Agitation [Fatal]
  - Hyperreflexia [Fatal]
  - Tremor [Fatal]
